FAERS Safety Report 26085009 (Version 1)
Quarter: 2025Q4

REPORT INFORMATION
  Report Type: Report from Study
  Country: CN (occurrence: CN)
  Receive Date: 20251125
  Receipt Date: 20251125
  Transmission Date: 20260118
  Serious: Yes (Other)
  Sender: ROCHE
  Company Number: CN-ROCHE-3513722

PATIENT
  Age: 29 Year
  Sex: Female
  Weight: 85 kg

DRUGS (55)
  1. POLATUZUMAB VEDOTIN [Suspect]
     Active Substance: POLATUZUMAB VEDOTIN
     Indication: Diffuse large B-cell lymphoma
     Route: 042
     Dates: start: 20231222, end: 20231222
  2. POLATUZUMAB VEDOTIN [Suspect]
     Active Substance: POLATUZUMAB VEDOTIN
     Route: 042
     Dates: start: 20240316, end: 20240316
  3. POLATUZUMAB VEDOTIN [Suspect]
     Active Substance: POLATUZUMAB VEDOTIN
     Route: 042
     Dates: start: 20240408, end: 20240408
  4. POLATUZUMAB VEDOTIN [Suspect]
     Active Substance: POLATUZUMAB VEDOTIN
     Dosage: SUBSEQUENT DOSE ON 13-JAN-2024, 03-FEB-2024, 16-MAR-2024 AND 08-APR-2024 WITH SAME DOSING DETAILS
     Route: 042
     Dates: start: 20240113, end: 20240113
  5. POLATUZUMAB VEDOTIN [Suspect]
     Active Substance: POLATUZUMAB VEDOTIN
     Route: 042
     Dates: start: 20240203, end: 20240203
  6. RITUXIMAB [Suspect]
     Active Substance: RITUXIMAB
     Indication: Diffuse large B-cell lymphoma
     Dosage: ON 16/MAR/2024, 07/APR/2024, 23/FEB/2023, 12/JAN/2024 AND 02/FEB/2023 SHE RECEIVED SUBSEQUENT DOSE O
     Route: 042
     Dates: start: 20231221, end: 20231221
  7. RITUXIMAB [Suspect]
     Active Substance: RITUXIMAB
     Dosage: ON 16/MAR/2024, 07/APR/2024, 23/FEB/2023, 12/JAN/2024 AND 02/FEB/2023 SHE RECEIVED SUBSEQUENT DOSE O
     Route: 042
     Dates: start: 20240202, end: 20240202
  8. DOXORUBICIN [Suspect]
     Active Substance: DOXORUBICIN
     Indication: Diffuse large B-cell lymphoma
     Route: 065
  9. PREDNISONE [Suspect]
     Active Substance: PREDNISONE
     Indication: Diffuse large B-cell lymphoma
     Route: 048
     Dates: start: 20231222, end: 20231226
  10. PREDNISONE [Suspect]
     Active Substance: PREDNISONE
     Route: 048
     Dates: start: 20240315, end: 20240319
  11. PREDNISONE [Suspect]
     Active Substance: PREDNISONE
     Route: 048
     Dates: start: 20240320, end: 20240324
  12. PREDNISONE [Suspect]
     Active Substance: PREDNISONE
     Route: 048
     Dates: start: 20240407, end: 20240411
  13. PREDNISONE [Suspect]
     Active Substance: PREDNISONE
     Dosage: AND SUBSEQUENT DOSE ON 12-JAN-2024, 02-FEB-2024 WITH SAME DOSING DETAILS AND ON 15-MAR-2024 AT A DOS
     Route: 048
     Dates: start: 20240112, end: 20240116
  14. PREDNISONE [Suspect]
     Active Substance: PREDNISONE
     Route: 048
     Dates: start: 20240202, end: 20240206
  15. CYCLOPHOSPHAMIDE [Suspect]
     Active Substance: CYCLOPHOSPHAMIDE
     Indication: Diffuse large B-cell lymphoma
     Route: 042
     Dates: start: 20231222, end: 20231222
  16. CYCLOPHOSPHAMIDE [Suspect]
     Active Substance: CYCLOPHOSPHAMIDE
     Route: 042
     Dates: start: 20240316, end: 20240316
  17. CYCLOPHOSPHAMIDE [Suspect]
     Active Substance: CYCLOPHOSPHAMIDE
     Dosage: AND SUBSEQUENT DOSE ON 13-JAN-2024, 03-FEB-2024 AND 16-MAR-2024 AT A DOSE OF 1G ONCE
     Route: 042
     Dates: start: 20240113, end: 20240113
  18. CYCLOPHOSPHAMIDE [Suspect]
     Active Substance: CYCLOPHOSPHAMIDE
     Route: 042
     Dates: start: 20240203, end: 20240203
  19. PIRARUBICIN [Suspect]
     Active Substance: PIRARUBICIN
     Indication: Diffuse large B-cell lymphoma
     Route: 042
     Dates: start: 20231222, end: 20231222
  20. PIRARUBICIN [Suspect]
     Active Substance: PIRARUBICIN
     Route: 042
     Dates: start: 20240316, end: 20240316
  21. PIRARUBICIN [Suspect]
     Active Substance: PIRARUBICIN
     Route: 042
     Dates: start: 20240408, end: 20240408
  22. PIRARUBICIN [Suspect]
     Active Substance: PIRARUBICIN
     Dosage: AND SUBSEQUENT DOSE ON 13-JAN-2024, 03-FEB-2024, 16-MAR-2024 AND 08-APR-2024 AT A DOSE OF 50MG ONCE
     Route: 042
     Dates: start: 20240113, end: 20240113
  23. PIRARUBICIN [Suspect]
     Active Substance: PIRARUBICIN
     Route: 042
     Dates: start: 20240203, end: 20240203
  24. BICYCLOL [Concomitant]
     Active Substance: BICYCLOL
  25. DEXRAZOXANE [Concomitant]
     Active Substance: DEXRAZOXANE
  26. DIPHENHYDRAMINE [Concomitant]
     Active Substance: DIPHENHYDRAMINE
  27. METHYLPREDNISOLONE SODIUM SUCCINATE [Concomitant]
     Active Substance: METHYLPREDNISOLONE SODIUM SUCCINATE
  28. Glutathione for Injection [Concomitant]
  29. Mecapegfilgrastim Injection [Concomitant]
  30. DEXAMETHASONE SODIUM PHOSPHATE [Concomitant]
     Active Substance: DEXAMETHASONE SODIUM PHOSPHATE
  31. METHYLPREDNISOLONE [Concomitant]
     Active Substance: METHYLPREDNISOLONE
  32. FOSAPREPITANT DIMEGLUMINE [Concomitant]
     Active Substance: FOSAPREPITANT DIMEGLUMINE
  33. TROPISETRON [Concomitant]
     Active Substance: TROPISETRON
  34. GRANISETRON [Concomitant]
     Active Substance: GRANISETRON
  35. human granulocyte stimulating factor [Concomitant]
  36. CALCIUM GLUCONATE [Concomitant]
     Active Substance: CALCIUM GLUCONATE
  37. METOCLOPRAMIDE [Concomitant]
     Active Substance: METOCLOPRAMIDE
  38. Gentamicin Sulfate Injection [Concomitant]
  39. SPIRONOLACTONE [Concomitant]
     Active Substance: SPIRONOLACTONE
  40. FUROSEMIDE [Concomitant]
     Active Substance: FUROSEMIDE
  41. VITAMIN C [Concomitant]
     Active Substance: ASCORBIC ACID
  42. VITAMIN B6 [Concomitant]
     Active Substance: PYRIDOXINE HYDROCHLORIDE
  43. Magnesium Isoglycyrrhizinate Injection [Concomitant]
  44. METOPROLOL TARTRATE [Concomitant]
     Active Substance: METOPROLOL TARTRATE
  45. Multi-Trace Elements Injection [Concomitant]
  46. Fat Emulsion, Amino Acids(17) and Glucose(19%) Injection [Concomitant]
  47. B-Recombinant Human Thrombopoietin Injection [Concomitant]
  48. FLUCONAZOLE [Concomitant]
     Active Substance: FLUCONAZOLE
  49. Moxifloxacin Hydrochloride and Sodium Chloride Injection [Concomitant]
  50. LINEZOLID [Concomitant]
     Active Substance: LINEZOLID
  51. Live Combined Bifidobacterium and Lactobacillus Tablets [Concomitant]
  52. LIDOCAINE HYDROCHLORIDE [Concomitant]
     Active Substance: LIDOCAINE HYDROCHLORIDE
  53. LACTULOSE [Concomitant]
     Active Substance: LACTULOSE
  54. HYDROCORTISONE SODIUM SUCCINATE [Concomitant]
     Active Substance: HYDROCORTISONE SODIUM SUCCINATE
  55. Montmorillonite powder [Concomitant]

REACTIONS (7)
  - Hypertriglyceridaemia [Not Recovered/Not Resolved]
  - Hypoalbuminaemia [Recovered/Resolved]
  - Hyperphosphataemia [Recovered/Resolved]
  - Lymphocyte count decreased [Not Recovered/Not Resolved]
  - Aspartate aminotransferase increased [Recovered/Resolved]
  - Hyperglycaemia [Recovered/Resolved]
  - Alanine aminotransferase increased [Recovered/Resolved]

NARRATIVE: CASE EVENT DATE: 20240112
